FAERS Safety Report 22892270 (Version 3)
Quarter: 2023Q4

REPORT INFORMATION
  Report Type: Spontaneous
  Country: US (occurrence: US)
  Receive Date: 20230901
  Receipt Date: 20231114
  Transmission Date: 20240109
  Serious: No
  Sender: FDA-Public Use
  Company Number: US-002147023-NVSC2023US188135

PATIENT
  Age: 9 Month
  Sex: Female

DRUGS (1)
  1. ZOLGENSMA [Suspect]
     Active Substance: ONASEMNOGENE ABEPARVOVEC-XIOI
     Indication: Spinal muscular atrophy
     Dosage: 1.0 X 10^14 VECTOR GENOMES/KG ONCE/SINGLE
     Route: 042
     Dates: start: 202304

REACTIONS (3)
  - Asthenia [Unknown]
  - Balance disorder [Unknown]
  - Drug ineffective [Unknown]
